FAERS Safety Report 10028921 (Version 3)
Quarter: 2014Q2

REPORT INFORMATION
  Report Type: Spontaneous
  Country: JP (occurrence: JP)
  Receive Date: 20140321
  Receipt Date: 20140519
  Transmission Date: 20141212
  Serious: Yes (Other)
  Sender: FDA-Public Use
  Company Number: JP-OTSUKA-JP-2014-12487

PATIENT
  Age: 1 Year
  Sex: Female

DRUGS (3)
  1. BUSULFEX [Suspect]
     Indication: CORD BLOOD TRANSPLANT THERAPY
     Dosage: 0.6 MG/KG, QID
     Route: 041
  2. ETOPOSIDE [Concomitant]
     Indication: CORD BLOOD TRANSPLANT THERAPY
     Dosage: 60 MG/KG, DAILY DOSE
     Route: 065
  3. CYCLOPHOSPHAMIDE MONOHYDRATE [Concomitant]
     Indication: CORD BLOOD TRANSPLANT THERAPY
     Dosage: 60 MG/KG, DAILY DOSE
     Route: 065

REACTIONS (2)
  - Organising pneumonia [Recovering/Resolving]
  - Pericardial effusion [Recovering/Resolving]
